FAERS Safety Report 8300165-5 (Version None)
Quarter: 2012Q2

REPORT INFORMATION
  Report Type: 
  Country: None (occurrence: None)
  Receive Date: 20120420
  Receipt Date: 20120416
  Transmission Date: 20120825
  Serious: Yes (Hospitalization, Other)
  Sender: FDA-Public Use
  Company Number: US-BAYER-201028653NA

PATIENT
  Age: 32 Year
  Sex: Female
  Weight: 97.506 kg

DRUGS (10)
  1. YASMIN [Suspect]
     Indication: CONTRACEPTION
     Route: 048
  2. NAPROXEN (ALEVE) [Concomitant]
     Dosage: UNK UNK, PRN
  3. IBUPROFEN (ADVIL) [Concomitant]
     Dosage: UNK UNK, PRN
  4. NUVIGIL [Concomitant]
     Indication: DEPRESSION
  5. DROSPIRENONE AND ETHINYL ESTRADIOL [Suspect]
     Indication: CONTRACEPTION
     Dosage: UNK
     Dates: start: 20090701, end: 20091001
  6. TYLENOL (CAPLET) [Concomitant]
     Dosage: UNK UNK, PRN
  7. SPIRONOLACTONE [Concomitant]
     Indication: HORMONE REPLACEMENT THERAPY
     Dosage: 25 MG, UNK
     Dates: start: 20091001
  8. AMPHETAMINE AND DEXTROAMPHETAMINE SALTS [Concomitant]
     Indication: NARCOLEPSY
     Dosage: UNK
     Dates: start: 20060101
  9. PROVIGIL [Concomitant]
     Indication: NARCOLEPSY
     Dosage: 200 MG, UNK
  10. PROVIGIL [Concomitant]
     Indication: DEPRESSION

REACTIONS (3)
  - PULMONARY EMBOLISM [None]
  - DEEP VEIN THROMBOSIS [None]
  - GALLBLADDER DISORDER [None]
